FAERS Safety Report 6397744-1 (Version None)
Quarter: 2009Q4

REPORT INFORMATION
  Report Type: 
  Country: None (occurrence: None)
  Receive Date: 20091012
  Receipt Date: 20091006
  Transmission Date: 20100525
  Serious: Yes (Other)
  Sender: FDA-Public Use
  Company Number: US-ELI_LILLY_AND_COMPANY-US200910001647

PATIENT
  Age: 57 Year
  Sex: Female

DRUGS (1)
  1. GEMZAR [Suspect]
     Indication: NON-SMALL CELL LUNG CANCER METASTATIC
     Dosage: 2125 MG, DAYS 1 AND 8 EVERY 3 WEEKS
     Route: 042
     Dates: start: 20090731

REACTIONS (2)
  - HYPERSENSITIVITY [None]
  - PERIORBITAL OEDEMA [None]
